FAERS Safety Report 5940336-6 (Version None)
Quarter: 2008Q4

REPORT INFORMATION
  Report Type: 
  Country: None (occurrence: None)
  Receive Date: 20081104
  Receipt Date: 20081023
  Transmission Date: 20090506
  Serious: Yes (Hospitalization, Other)
  Sender: FDA-Public Use
  Company Number: IE-WYE-G01446008

PATIENT

DRUGS (1)
  1. EFFEXOR [Suspect]
     Indication: BIPOLAR I DISORDER
     Dosage: UNKNOWN

REACTIONS (6)
  - ALCOHOLISM [None]
  - APATHY [None]
  - BIPOLAR I DISORDER [None]
  - CONDITION AGGRAVATED [None]
  - DELUSIONAL DISORDER, UNSPECIFIED TYPE [None]
  - SUICIDAL IDEATION [None]
